FAERS Safety Report 7565904-X (Version None)
Quarter: 2011Q2

REPORT INFORMATION
  Report Type: 
  Country: None (occurrence: None)
  Receive Date: 20110623
  Receipt Date: 20110610
  Transmission Date: 20111010
  Serious: Yes (Hospitalization)
  Sender: FDA-Public Use
  Company Number: IT-ELI_LILLY_AND_COMPANY-IT201106004017

PATIENT

DRUGS (2)
  1. CARBOPLATIN [Concomitant]
     Dosage: 600 MG, UNKNOWN
     Route: 042
     Dates: start: 20100317, end: 20100510
  2. ALIMTA [Suspect]
     Indication: LUNG ADENOCARCINOMA
     Dosage: 900 MG, UNKNOWN
     Route: 042
     Dates: start: 20100317, end: 20100510

REACTIONS (3)
  - HEPATIC NECROSIS [None]
  - METABOLIC DISORDER [None]
  - JAUNDICE [None]
